FAERS Safety Report 8165230-4 (Version None)
Quarter: 2012Q1

REPORT INFORMATION
  Report Type: 
  Country: None (occurrence: None)
  Receive Date: 20120227
  Receipt Date: 20120216
  Transmission Date: 20120608
  Serious: Yes (Other)
  Sender: FDA-Public Use
  Company Number: US-RB-035130-12

PATIENT
  Age: 65 Year
  Sex: Female

DRUGS (2)
  1. VITAMINS B6 [Concomitant]
     Indication: PRODUCT USED FOR UNKNOWN INDICATION
  2. MUCINEX DM [Suspect]
     Indication: PRODUCT USED FOR UNKNOWN INDICATION
     Route: 048
     Dates: start: 20120215

REACTIONS (3)
  - MUSCLE SPASMS [None]
  - HYPERTENSION [None]
  - NAUSEA [None]
